FAERS Safety Report 6388252-2 (Version None)
Quarter: 2009Q4

REPORT INFORMATION
  Report Type: 
  Country: None (occurrence: None)
  Receive Date: 20091001
  Receipt Date: 20091001
  Transmission Date: 20100525
  Serious: Yes (Hospitalization, Disabling)
  Sender: FDA-Public Use
  Company Number: None

PATIENT
  Age: 30 Year
  Sex: Female
  Weight: 81.6475 kg

DRUGS (2)
  1. MIRENA [Suspect]
     Indication: BREAST FEEDING
     Dates: start: 20090910, end: 20090928
  2. MIRENA [Suspect]
     Indication: CONTRACEPTION
     Dates: start: 20090910, end: 20090928

REACTIONS (2)
  - DEVICE DISLOCATION [None]
  - UTERINE RUPTURE [None]
